FAERS Safety Report 10249781 (Version 1)
Quarter: 2014Q2

REPORT INFORMATION
  Report Type: Spontaneous
  Country: US (occurrence: None)
  Receive Date: 20140618
  Receipt Date: 20140618
  Transmission Date: 20141212
  Serious: Yes (Other)
  Sender: FDA-Public Use
  Company Number: None

PATIENT
  Age: 24 Year
  Sex: Female
  Weight: 68.95 kg

DRUGS (3)
  1. DYMISTA [Suspect]
     Indication: RHINITIS ALLERGIC
     Dosage: 1 SPRAY TWICE DAILY INHALATION
     Route: 055
     Dates: start: 20140318, end: 20140617
  2. DYMISTA [Suspect]
     Indication: SINUS CONGESTION
     Dosage: 1 SPRAY TWICE DAILY INHALATION
     Route: 055
     Dates: start: 20140318, end: 20140617
  3. DYMISTA [Suspect]
     Indication: NASAL CONGESTION
     Dosage: 1 SPRAY TWICE DAILY INHALATION
     Route: 055
     Dates: start: 20140318, end: 20140617

REACTIONS (11)
  - Upper-airway cough syndrome [None]
  - Lacrimation increased [None]
  - Dysphagia [None]
  - Cough [None]
  - Dyspnoea [None]
  - Chest pain [None]
  - Bronchospasm [None]
  - Fatigue [None]
  - Asthenia [None]
  - Anxiety [None]
  - Headache [None]
